FAERS Safety Report 7207490-X (Version None)
Quarter: 2011Q1

REPORT INFORMATION
  Report Type: 
  Country: None (occurrence: None)
  Receive Date: 20110103
  Receipt Date: 20101221
  Transmission Date: 20110831
  Serious: Yes (Hospitalization)
  Sender: FDA-Public Use
  Company Number: FR-SANOFI-AVENTIS-2010SA076881

PATIENT
  Age: 84 Year
  Sex: Female

DRUGS (14)
  1. ESOMEPRAZOLE [Concomitant]
     Route: 048
  2. BISOPROLOL FUMARATE [Concomitant]
     Route: 048
  3. DAFALGAN [Concomitant]
     Route: 048
  4. CACIT D3 [Concomitant]
     Route: 048
  5. LEVOTHYROX [Concomitant]
     Indication: THYROID DISORDER
     Route: 048
  6. RIFADIN [Suspect]
     Route: 042
     Dates: start: 20100308, end: 20100322
  7. AMOXICILLIN [Suspect]
     Route: 048
     Dates: start: 20100331, end: 20100402
  8. RIFADIN [Suspect]
     Indication: INFECTION
     Route: 048
     Dates: start: 20100306, end: 20100308
  9. TRIVASTAL [Concomitant]
     Route: 048
  10. VANCOCIN HYDROCHLORIDE [Suspect]
     Indication: INFECTION
     Route: 042
     Dates: start: 20100308, end: 20100330
  11. AMOXICILLIN [Suspect]
     Indication: INFECTION
     Dosage: DOSE:3 UNIT(S)
     Route: 048
     Dates: start: 20100306, end: 20100308
  12. CLAVULANATE POTASSIUM [Suspect]
     Indication: INFECTION
     Dosage: DOSE:3 UNIT(S)
     Route: 048
     Dates: start: 20100306, end: 20100308
  13. FORLAX [Concomitant]
     Indication: CONSTIPATION
     Route: 048
  14. TOPALGIC [Concomitant]
     Indication: PAIN
     Route: 048

REACTIONS (1)
  - DRUG RASH WITH EOSINOPHILIA AND SYSTEMIC SYMPTOMS [None]
